FAERS Safety Report 8658042 (Version 3)
Quarter: 2013Q4

REPORT INFORMATION
  Report Type: Spontaneous
  Country: US (occurrence: US)
  Receive Date: 20120710
  Receipt Date: 20131223
  Transmission Date: 20140711
  Serious: Yes (Other)
  Sender: FDA-Public Use
  Company Number: US-PFIZER INC-2012163958

PATIENT
  Age: 58 Year
  Sex: Female

DRUGS (1)
  1. CHANTIX [Suspect]
     Dosage: UNK
     Dates: start: 20100701, end: 20110325

REACTIONS (5)
  - Suicidal ideation [Unknown]
  - Agitation [Unknown]
  - Violence-related symptom [Unknown]
  - Mood swings [Unknown]
  - Mental disorder [Unknown]
